FAERS Safety Report 7035621-3 (Version None)
Quarter: 2010Q4

REPORT INFORMATION
  Report Type: 
  Country: None (occurrence: None)
  Receive Date: 20101008
  Receipt Date: 20100930
  Transmission Date: 20110411
  Serious: Yes (Other)
  Sender: FDA-Public Use
  Company Number: US-JNJFOC-20101000782

PATIENT
  Age: 22 Year
  Sex: Female

DRUGS (1)
  1. NECON 7/7/7 [Suspect]
     Indication: CONTRACEPTION
     Route: 065

REACTIONS (3)
  - CERVIX OPERATION [None]
  - VAGINAL DISCHARGE [None]
  - VAGINAL HAEMORRHAGE [None]
